FAERS Safety Report 6106950-2 (Version None)
Quarter: 2009Q1

REPORT INFORMATION
  Report Type: 
  Country: None (occurrence: None)
  Receive Date: 20090306
  Receipt Date: 20090306
  Transmission Date: 20090719
  Serious: Yes (Other)
  Sender: FDA-Public Use
  Company Number: None

PATIENT
  Sex: Male
  Weight: 74.8435 kg

DRUGS (1)
  1. AVELOX [Suspect]
     Indication: BRONCHITIS
     Dosage: 1-400 MG 1 PER DAY ORAL
     Route: 048
     Dates: start: 20081222, end: 20081231

REACTIONS (8)
  - ANOREXIA [None]
  - ANXIETY [None]
  - DEPRESSION [None]
  - INSOMNIA [None]
  - MANIA [None]
  - NERVOUSNESS [None]
  - NIGHTMARE [None]
  - SUICIDAL IDEATION [None]
